FAERS Safety Report 10993488 (Version 1)
Quarter: 2015Q2

REPORT INFORMATION
  Report Type: Spontaneous
  Country: US (occurrence: None)
  Receive Date: 20150406
  Receipt Date: 20150406
  Transmission Date: 20150821
  Serious: Yes (Hospitalization)
  Sender: FDA-Public Use
  Company Number: None

PATIENT
  Age: 60 Year
  Sex: Female
  Weight: 49.9 kg

DRUGS (4)
  1. TAMIFLU [Suspect]
     Active Substance: OSELTAMIVIR PHOSPHATE
     Indication: COUGH
     Dosage: TAKEN BY MOUTH
     Dates: start: 20150401, end: 20150404
  2. TAMIFLU [Suspect]
     Active Substance: OSELTAMIVIR PHOSPHATE
     Indication: PYREXIA
     Dosage: TAKEN BY MOUTH
     Dates: start: 20150401, end: 20150404
  3. CALCIUM [Concomitant]
     Active Substance: CALCIUM
  4. PACEMAKER [Concomitant]

REACTIONS (8)
  - Ventricular tachycardia [None]
  - Diarrhoea [None]
  - Blood electrolytes abnormal [None]
  - Muscle injury [None]
  - Arrhythmia [None]
  - Abdominal discomfort [None]
  - Pneumonia viral [None]
  - Hepatic enzyme increased [None]

NARRATIVE: CASE EVENT DATE: 20150305
